FAERS Safety Report 15144688 (Version 9)
Quarter: 2019Q3

REPORT INFORMATION
  Report Type: Spontaneous
  Country: US (occurrence: US)
  Receive Date: 20180713
  Receipt Date: 20190919
  Transmission Date: 20191004
  Serious: Yes (Hospitalization, Other)
  Sender: FDA-Public Use
  Company Number: US-PFIZER INC-2018282232

PATIENT
  Age: 71 Year
  Sex: Female

DRUGS (8)
  1. BOSULIF [Interacting]
     Active Substance: BOSUTINIB MONOHYDRATE
     Dosage: 100 MG, DAILY
     Dates: start: 201710
  2. ZANTAC [Interacting]
     Active Substance: RANITIDINE HYDROCHLORIDE
     Indication: GASTROOESOPHAGEAL REFLUX DISEASE
     Dosage: UNK
  3. BOSULIF [Suspect]
     Active Substance: BOSUTINIB MONOHYDRATE
     Indication: CHRONIC MYELOID LEUKAEMIA
     Dosage: 200 MG, 1X/DAY (QD)
     Route: 048
     Dates: start: 20170927
  4. BOSULIF [Interacting]
     Active Substance: BOSUTINIB MONOHYDRATE
     Indication: GASTROOESOPHAGEAL REFLUX DISEASE
     Dosage: UNK, (THREE TABLETS)
  5. BOSULIF [Interacting]
     Active Substance: BOSUTINIB MONOHYDRATE
     Dosage: 150 MG, UNK
  6. PLAVIX [Concomitant]
     Active Substance: CLOPIDOGREL BISULFATE
     Dosage: UNK UNK, DAILY
  7. BOSULIF [Interacting]
     Active Substance: BOSUTINIB MONOHYDRATE
     Dosage: 200 MG, DAILY
  8. BABY ASPIRIN [Concomitant]
     Active Substance: ASPIRIN
     Dosage: UNK UNK, DAILY

REACTIONS (25)
  - Haematocrit decreased [Unknown]
  - Cerebrovascular disorder [Unknown]
  - White blood cell count increased [Unknown]
  - Neutrophil count increased [Unknown]
  - Arthritis [Unknown]
  - Mucosal inflammation [Recovered/Resolved]
  - Glossitis [Recovering/Resolving]
  - Red blood cell count decreased [Unknown]
  - Mean cell haemoglobin decreased [Unknown]
  - Drug interaction [Unknown]
  - Cerebrovascular accident [Unknown]
  - Mean cell haemoglobin concentration decreased [Unknown]
  - Arthralgia [Unknown]
  - Gastrooesophageal reflux disease [Unknown]
  - Tongue disorder [Unknown]
  - Tongue erythema [Unknown]
  - Mouth ulceration [Recovering/Resolving]
  - Mean platelet volume decreased [Unknown]
  - Blood creatinine decreased [Unknown]
  - Weight increased [Unknown]
  - Stomatitis [Not Recovered/Not Resolved]
  - Haemoglobin decreased [Unknown]
  - Platelet count increased [Unknown]
  - Red cell distribution width increased [Unknown]
  - Monocyte count increased [Unknown]

NARRATIVE: CASE EVENT DATE: 20170929
